FAERS Safety Report 5087048-1 (Version None)
Quarter: 2006Q3

REPORT INFORMATION
  Report Type: 
  Country: None (occurrence: None)
  Receive Date: 20060821
  Receipt Date: 20060809
  Transmission Date: 20061208
  Serious: Yes (Life-Threatening, Hospitalization)
  Sender: FDA-Public Use
  Company Number: 2006097429

PATIENT
  Age: 46 Year
  Sex: Male
  Weight: 64 kg

DRUGS (2)
  1. SUTENT [Suspect]
     Indication: NEOPLASM MALIGNANT
     Dosage: 25 MG (25 MG, FREQUENCY: ONCE INTERVAL: 2 WEEKS 3 WEEKS) ORAL
     Route: 048
     Dates: start: 20060802, end: 20060815
  2. IRINOTECAN HCL [Suspect]
     Indication: NEOPLASM MALIGNANT
     Dosage: 230 MG (125 MG/M2, 1 IN 3 WK) INTRAVENOUS
     Route: 042
     Dates: start: 20060802, end: 20060802

REACTIONS (4)
  - DYSPHAGIA [None]
  - PHARYNGOLARYNGEAL PAIN [None]
  - SELF-MEDICATION [None]
  - SEPSIS [None]
